FAERS Safety Report 4422939-3 (Version None)
Quarter: 2004Q3

REPORT INFORMATION
  Report Type: 
  Country: None (occurrence: None)
  Receive Date: 20040811
  Receipt Date: 20040804
  Transmission Date: 20050211
  Serious: Yes (Hospitalization)
  Sender: FDA-Public Use
  Company Number: US-JNJFOC-20040603386

PATIENT
  Age: 55 Year
  Sex: Female

DRUGS (7)
  1. DURAGESIC [Suspect]
     Route: 062
  2. DURAGESIC [Suspect]
     Route: 062
  3. KADIAN [Suspect]
     Indication: PAIN
     Route: 049
  4. TRAZODONE HCL [Concomitant]
     Indication: DRUG USE FOR UNKNOWN INDICATION
  5. FLUOXETINE [Concomitant]
     Indication: DRUG USE FOR UNKNOWN INDICATION
  6. GABAPENTIN [Concomitant]
     Indication: DRUG USE FOR UNKNOWN INDICATION
  7. ALPRAZOLAM [Concomitant]
     Indication: DRUG USE FOR UNKNOWN INDICATION

REACTIONS (21)
  - ABDOMINAL WALL ABSCESS [None]
  - ASTERIXIS [None]
  - BLOOD ALBUMIN DECREASED [None]
  - BLOOD MAGNESIUM DECREASED [None]
  - CLONIC CONVULSION [None]
  - CONFUSIONAL STATE [None]
  - CONSTIPATION [None]
  - DEHYDRATION [None]
  - DELIRIUM [None]
  - DELUSION [None]
  - HYPOKALAEMIA [None]
  - MENTAL IMPAIRMENT [None]
  - METABOLIC DISORDER [None]
  - MYOCLONUS [None]
  - NAUSEA [None]
  - PAIN EXACERBATED [None]
  - PERFORMANCE STATUS DECREASED [None]
  - PYREXIA [None]
  - SEDATION [None]
  - SPEECH DISORDER [None]
  - THINKING ABNORMAL [None]
